FAERS Safety Report 13031343 (Version 1)
Quarter: 2016Q4

REPORT INFORMATION
  Report Type: Spontaneous
  Country: US (occurrence: US)
  Receive Date: 20161215
  Receipt Date: 20161215
  Transmission Date: 20170207
  Serious: No
  Sender: FDA-Public Use
  Company Number: US-SA-2016SA015355

PATIENT
  Age: 68 Year
  Sex: Female

DRUGS (2)
  1. FERRLECIT [Suspect]
     Active Substance: SODIUM FERRIC GLUCONATE COMPLEX
     Indication: IRON DEFICIENCY ANAEMIA
     Dosage: DOSE: 125MG IN 100ML NS OVER ONE HOUR
     Route: 065
     Dates: start: 20160106, end: 20160106
  2. FERRLECIT [Suspect]
     Active Substance: SODIUM FERRIC GLUCONATE COMPLEX
     Indication: IRON DEFICIENCY ANAEMIA
     Dosage: DOSE: 125MG IN 100ML NS OVER ONE HOUR?38TH INFUSION
     Route: 065
     Dates: start: 20160120, end: 20160120

REACTIONS (5)
  - Flushing [Recovered/Resolved]
  - Nausea [Recovered/Resolved]
  - Dizziness [Recovered/Resolved]
  - Hypotension [Recovered/Resolved]
  - Abdominal pain [Recovered/Resolved]

NARRATIVE: CASE EVENT DATE: 20160106
